FAERS Safety Report 9976068 (Version 21)
Quarter: 2017Q3

REPORT INFORMATION
  Report Type: Spontaneous
  Country: US (occurrence: US)
  Receive Date: 20140306
  Receipt Date: 20170712
  Transmission Date: 20171128
  Serious: Yes (Other)
  Sender: FDA-Public Use
  Company Number: US-ASTRAZENECA-2013SE69849

PATIENT
  Age: 80 Year
  Sex: Female
  Weight: 83.9 kg

DRUGS (127)
  1. CRESTOR [Suspect]
     Active Substance: ROSUVASTATIN CALCIUM
     Indication: BLOOD CHOLESTEROL ABNORMAL
     Route: 048
     Dates: start: 20131115
  2. CRESTOR [Suspect]
     Active Substance: ROSUVASTATIN CALCIUM
     Indication: LOW DENSITY LIPOPROTEIN INCREASED
     Route: 048
  3. METOPROLOL SUCCINATE. [Interacting]
     Active Substance: METOPROLOL SUCCINATE
     Indication: AORTIC STENOSIS
     Dosage: 25 MG, DAILY (PAR PHARMACEUTICAL) (NON AZ PRODUCT)
     Route: 048
     Dates: start: 2013
  4. METOPROLOL SUCCINATE. [Interacting]
     Active Substance: METOPROLOL SUCCINATE
     Indication: CARDIAC FAILURE
     Dosage: 25 MG, DAILY (PAR PHARMACEUTICAL) (NON AZ PRODUCT)
     Route: 048
  5. METOPROLOL SUCCINATE. [Interacting]
     Active Substance: METOPROLOL SUCCINATE
     Indication: HYPERTROPHIC CARDIOMYOPATHY
     Dosage: 25 MG, DAILY (PAR PHARMACEUTICAL) (NON AZ PRODUCT)
     Route: 048
     Dates: start: 20130823
  6. METOPROLOL SUCCINATE. [Interacting]
     Active Substance: METOPROLOL SUCCINATE
     Indication: BLOOD PRESSURE SYSTOLIC ABNORMAL
     Dosage: 25 MG, DAILY (PAR PHARMACEUTICAL) (NON AZ PRODUCT)
     Route: 048
     Dates: start: 201507
  7. METOPROLOL SUCCINATE. [Interacting]
     Active Substance: METOPROLOL SUCCINATE
     Indication: BLOOD PRESSURE ABNORMAL
     Dosage: 25 MG, DAILY (PAR PHARMACEUTICAL) (NON AZ PRODUCT)
     Route: 048
     Dates: start: 201507
  8. METOPROLOL SUCCINATE. [Interacting]
     Active Substance: METOPROLOL SUCCINATE
     Indication: AORTIC STENOSIS
     Dosage: 25 MG, DAILY (PAR PHARMACEUTICAL) (NON AZ PRODUCT)
     Route: 048
  9. LIPITOR [Suspect]
     Active Substance: ATORVASTATIN CALCIUM
     Route: 065
     Dates: end: 20131115
  10. VERAPAMIL [Interacting]
     Active Substance: VERAPAMIL HYDROCHLORIDE
     Indication: HYPERTROPHIC CARDIOMYOPATHY
     Route: 048
  11. LASIX [Concomitant]
     Active Substance: FUROSEMIDE
     Indication: OEDEMA PERIPHERAL
     Dosage: 20 MG , ONE AND ONE HALF TABLET, 3 DAYS PER WEEK
     Route: 048
  12. ASPIRIN. [Concomitant]
     Active Substance: ASPIRIN
     Indication: ANTICOAGULANT THERAPY
     Dosage: 81.0MG UNKNOWN
     Route: 048
  13. ASPIRIN. [Concomitant]
     Active Substance: ASPIRIN
     Indication: ANTICOAGULANT THERAPY
     Dosage: 162.0MG UNKNOWN
     Route: 048
     Dates: start: 2010
  14. ASPIRIN. [Concomitant]
     Active Substance: ASPIRIN
     Indication: ANTICOAGULANT THERAPY
     Dosage: 160 MG, DAILY UNKNOWN
     Route: 048
     Dates: start: 2012
  15. VITAMIN D [Concomitant]
     Active Substance: CHOLECALCIFEROL
     Indication: VITAMIN D DEFICIENCY
     Route: 048
     Dates: start: 2014
  16. CRESTOR [Suspect]
     Active Substance: ROSUVASTATIN CALCIUM
     Indication: HYPERLIPIDAEMIA
     Route: 048
     Dates: start: 20131115
  17. CRESTOR [Suspect]
     Active Substance: ROSUVASTATIN CALCIUM
     Indication: BLOOD CHOLESTEROL ABNORMAL
     Route: 048
  18. CRESTOR [Suspect]
     Active Substance: ROSUVASTATIN CALCIUM
     Indication: HYPERLIPIDAEMIA
     Dosage: 5 MG FOUR TIMES A WEEK
     Route: 048
     Dates: start: 201311
  19. CRESTOR [Suspect]
     Active Substance: ROSUVASTATIN CALCIUM
     Indication: LOW DENSITY LIPOPROTEIN INCREASED
     Dosage: 5 MG FOUR TIMES A WEEK
     Route: 048
     Dates: start: 201410
  20. CRESTOR [Suspect]
     Active Substance: ROSUVASTATIN CALCIUM
     Indication: BLOOD CHOLESTEROL ABNORMAL
     Dosage: FOUR TIMES PER WEEK
     Route: 048
  21. CRESTOR [Suspect]
     Active Substance: ROSUVASTATIN CALCIUM
     Indication: LIPIDS ABNORMAL
     Dosage: FOUR TIMES PER WEEK
     Route: 048
  22. METOPROLOL SUCCINATE. [Interacting]
     Active Substance: METOPROLOL SUCCINATE
     Indication: BLOOD PRESSURE ABNORMAL
     Dosage: 25 MG, DAILY (PAR PHARMACEUTICAL) (NON AZ PRODUCT)
     Route: 048
     Dates: start: 2013
  23. METOPROLOL SUCCINATE. [Interacting]
     Active Substance: METOPROLOL SUCCINATE
     Indication: BLOOD PRESSURE SYSTOLIC ABNORMAL
     Dosage: 25 MG, DAILY (PAR PHARMACEUTICAL) (NON AZ PRODUCT)
     Route: 048
  24. METOPROLOL SUCCINATE. [Interacting]
     Active Substance: METOPROLOL SUCCINATE
     Indication: HEART RATE ABNORMAL
     Dosage: 25 MG, DAILY (PAR PHARMACEUTICAL) (NON AZ PRODUCT)
     Route: 048
     Dates: start: 20130823
  25. METOPROLOL SUCCINATE. [Interacting]
     Active Substance: METOPROLOL SUCCINATE
     Indication: BLOOD PRESSURE SYSTOLIC ABNORMAL
     Dosage: 25 MG, DAILY (PAR PHARMACEUTICAL) (NON AZ PRODUCT)
     Route: 048
  26. METOPROLOL SUCCINATE. [Interacting]
     Active Substance: METOPROLOL SUCCINATE
     Indication: CARDIAC FAILURE
     Dosage: 25 MG, DAILY (PAR PHARMACEUTICAL) (NON AZ PRODUCT)
     Route: 048
  27. METOPROLOL SUCCINATE. [Interacting]
     Active Substance: METOPROLOL SUCCINATE
     Indication: HEART RATE ABNORMAL
     Dosage: 50 MG, DAILY (PAR PHARMACEUTICAL) (NON AZ PRODUCT)
     Route: 048
     Dates: start: 201501, end: 201506
  28. METOPROLOL SUCCINATE. [Interacting]
     Active Substance: METOPROLOL SUCCINATE
     Indication: CARDIAC DISORDER
     Dosage: 50 MG, DAILY (PAR PHARMACEUTICAL) (NON AZ PRODUCT)
     Route: 048
     Dates: start: 201501, end: 201506
  29. METOPROLOL SUCCINATE. [Interacting]
     Active Substance: METOPROLOL SUCCINATE
     Indication: CARDIAC FAILURE
     Dosage: 25 MG, DAILY (PAR PHARMACEUTICAL) (NON AZ PRODUCT)
     Route: 048
  30. LASIX [Concomitant]
     Active Substance: FUROSEMIDE
     Indication: DIURETIC THERAPY
     Dosage: 20MG, 4 DAYS PER WEEK
     Route: 048
  31. LASIX [Concomitant]
     Active Substance: FUROSEMIDE
     Indication: FLUID RETENTION
     Dosage: 20 MG , ONE AND ONE HALF TABLET, 3 DAYS PER WEEK
     Route: 048
  32. LASIX [Concomitant]
     Active Substance: FUROSEMIDE
     Indication: DIURETIC THERAPY
     Dosage: 20 MG , ONE AND ONE HALF TABLET, 3 DAYS PER WEEK
     Route: 048
  33. LASIX [Concomitant]
     Active Substance: FUROSEMIDE
     Indication: FLUID RETENTION
     Route: 048
     Dates: start: 2010
  34. LASIX [Concomitant]
     Active Substance: FUROSEMIDE
     Indication: OEDEMA PERIPHERAL
     Dosage: DAILY AS NEEDED
     Route: 048
  35. LASIX [Concomitant]
     Active Substance: FUROSEMIDE
     Indication: DIURETIC THERAPY
     Dosage: DAILY AS NEEDED
     Route: 048
  36. EVISTA [Concomitant]
     Active Substance: RALOXIFENE HYDROCHLORIDE
     Indication: OSTEOPOROSIS
     Route: 048
     Dates: start: 2010
  37. VITAMIN D [Concomitant]
     Active Substance: CHOLECALCIFEROL
     Indication: BLOOD CALCIUM ABNORMAL
  38. ADVIL [Concomitant]
     Active Substance: IBUPROFEN
     Indication: SPINAL OSTEOARTHRITIS
     Dosage: 200.0MG AS REQUIRED
     Route: 048
     Dates: start: 2015
  39. CRESTOR [Suspect]
     Active Substance: ROSUVASTATIN CALCIUM
     Indication: BLOOD CHOLESTEROL ABNORMAL
     Dosage: 5 MG FOUR TIMES A WEEK
     Route: 048
     Dates: start: 201410
  40. METOPROLOL SUCCINATE. [Interacting]
     Active Substance: METOPROLOL SUCCINATE
     Indication: HEART RATE ABNORMAL
     Dosage: 25 MG, DAILY (PAR PHARMACEUTICAL) (NON AZ PRODUCT)
     Route: 048
     Dates: start: 2013
  41. METOPROLOL SUCCINATE. [Interacting]
     Active Substance: METOPROLOL SUCCINATE
     Indication: CARDIAC DISORDER
     Dosage: 25 MG, DAILY (PAR PHARMACEUTICAL) (NON AZ PRODUCT)
     Route: 048
     Dates: start: 20130823
  42. METOPROLOL SUCCINATE. [Interacting]
     Active Substance: METOPROLOL SUCCINATE
     Indication: CARDIAC DISORDER
     Dosage: 25 MG, DAILY (PAR PHARMACEUTICAL) (NON AZ PRODUCT)
     Route: 048
  43. METOPROLOL SUCCINATE. [Interacting]
     Active Substance: METOPROLOL SUCCINATE
     Indication: HYPERTROPHIC CARDIOMYOPATHY
     Dosage: 50 MG, DAILY (PAR PHARMACEUTICAL) (NON AZ PRODUCT)
     Route: 048
     Dates: start: 201501, end: 201506
  44. METOPROLOL SUCCINATE. [Interacting]
     Active Substance: METOPROLOL SUCCINATE
     Indication: HYPERTROPHIC CARDIOMYOPATHY
     Dosage: 25 MG, DAILY (PAR PHARMACEUTICAL) (NON AZ PRODUCT)
     Route: 048
     Dates: start: 201507
  45. METOPROLOL SUCCINATE. [Interacting]
     Active Substance: METOPROLOL SUCCINATE
     Indication: BLOOD PRESSURE SYSTOLIC ABNORMAL
     Dosage: 25 MG, DAILY (PAR PHARMACEUTICAL) (NON AZ PRODUCT)
     Route: 048
  46. LASIX [Concomitant]
     Active Substance: FUROSEMIDE
     Indication: DIURETIC THERAPY
     Route: 048
     Dates: start: 2010
  47. VITAMIN D [Concomitant]
     Active Substance: CHOLECALCIFEROL
     Indication: VITAMIN D DEFICIENCY
  48. VITAMIN D [Concomitant]
     Active Substance: CHOLECALCIFEROL
     Indication: BONE DISORDER
     Route: 048
     Dates: start: 2014
  49. ZANTAC [Concomitant]
     Active Substance: RANITIDINE HYDROCHLORIDE
     Indication: OESOPHAGEAL DISORDER
     Dosage: 75.0MG AS REQUIRED
     Route: 048
     Dates: start: 2006
  50. CRESTOR [Suspect]
     Active Substance: ROSUVASTATIN CALCIUM
     Indication: LOW DENSITY LIPOPROTEIN INCREASED
     Route: 048
     Dates: start: 20131115
  51. CRESTOR [Suspect]
     Active Substance: ROSUVASTATIN CALCIUM
     Indication: LIPIDS ABNORMAL
     Route: 048
     Dates: start: 20131115
  52. METOPROLOL SUCCINATE. [Interacting]
     Active Substance: METOPROLOL SUCCINATE
     Indication: HYPERTROPHIC CARDIOMYOPATHY
     Dosage: 25 MG, DAILY (PAR PHARMACEUTICAL) (NON AZ PRODUCT)
     Route: 048
     Dates: start: 2013
  53. METOPROLOL SUCCINATE. [Interacting]
     Active Substance: METOPROLOL SUCCINATE
     Indication: CARDIAC DISORDER
     Dosage: 25 MG, DAILY (PAR PHARMACEUTICAL) (NON AZ PRODUCT)
     Route: 048
  54. METOPROLOL SUCCINATE. [Interacting]
     Active Substance: METOPROLOL SUCCINATE
     Indication: HYPERTROPHIC CARDIOMYOPATHY
     Dosage: 25 MG, DAILY (PAR PHARMACEUTICAL) (NON AZ PRODUCT)
     Route: 048
  55. METOPROLOL SUCCINATE. [Interacting]
     Active Substance: METOPROLOL SUCCINATE
     Indication: AORTIC STENOSIS
     Dosage: 25 MG, DAILY (PAR PHARMACEUTICAL) (NON AZ PRODUCT)
     Route: 048
  56. METOPROLOL SUCCINATE. [Interacting]
     Active Substance: METOPROLOL SUCCINATE
     Indication: CARDIAC DISORDER
     Dosage: 25 MG, DAILY (PAR PHARMACEUTICAL) (NON AZ PRODUCT)
     Route: 048
  57. METOPROLOL SUCCINATE. [Interacting]
     Active Substance: METOPROLOL SUCCINATE
     Indication: HYPERTROPHIC CARDIOMYOPATHY
     Dosage: 25 MG, DAILY (PAR PHARMACEUTICAL) (NON AZ PRODUCT)
     Route: 048
  58. METOPROLOL SUCCINATE. [Interacting]
     Active Substance: METOPROLOL SUCCINATE
     Indication: AORTIC STENOSIS
     Dosage: 50 MG, DAILY (PAR PHARMACEUTICAL) (NON AZ PRODUCT)
     Route: 048
     Dates: start: 201501, end: 201506
  59. METOPROLOL SUCCINATE. [Interacting]
     Active Substance: METOPROLOL SUCCINATE
     Indication: CARDIAC FAILURE
     Dosage: 50 MG, DAILY (PAR PHARMACEUTICAL) (NON AZ PRODUCT)
     Route: 048
     Dates: start: 201501, end: 201506
  60. METOPROLOL SUCCINATE. [Interacting]
     Active Substance: METOPROLOL SUCCINATE
     Indication: HEART RATE ABNORMAL
     Dosage: 25 MG, DAILY (PAR PHARMACEUTICAL) (NON AZ PRODUCT)
     Route: 048
     Dates: start: 201507
  61. METOPROLOL SUCCINATE. [Interacting]
     Active Substance: METOPROLOL SUCCINATE
     Indication: CARDIAC DISORDER
     Dosage: 25 MG, DAILY (PAR PHARMACEUTICAL) (NON AZ PRODUCT)
     Route: 048
  62. LASIX [Concomitant]
     Active Substance: FUROSEMIDE
     Indication: OEDEMA PERIPHERAL
     Route: 048
     Dates: start: 2010
  63. LASIX [Concomitant]
     Active Substance: FUROSEMIDE
     Indication: FLUID RETENTION
     Route: 048
  64. VITAMIN D [Concomitant]
     Active Substance: CHOLECALCIFEROL
     Indication: BONE DISORDER
  65. ADVIL [Concomitant]
     Active Substance: IBUPROFEN
     Indication: TOOTH DISORDER
     Dosage: 200.0MG AS REQUIRED
     Route: 048
     Dates: start: 2015
  66. CALCIUM [Concomitant]
     Active Substance: CALCIUM
  67. CRESTOR [Suspect]
     Active Substance: ROSUVASTATIN CALCIUM
     Indication: HYPERLIPIDAEMIA
     Route: 048
  68. CRESTOR [Suspect]
     Active Substance: ROSUVASTATIN CALCIUM
     Indication: LOW DENSITY LIPOPROTEIN INCREASED
     Dosage: 5 MG FOUR TIMES A WEEK
     Route: 048
     Dates: start: 201311
  69. METOPROLOL SUCCINATE. [Interacting]
     Active Substance: METOPROLOL SUCCINATE
     Indication: CARDIAC DISORDER
     Dosage: 25 MG, DAILY (PAR PHARMACEUTICAL) (NON AZ PRODUCT)
     Route: 048
     Dates: start: 2013
  70. METOPROLOL SUCCINATE. [Interacting]
     Active Substance: METOPROLOL SUCCINATE
     Indication: AORTIC STENOSIS
     Dosage: 25 MG, DAILY (PAR PHARMACEUTICAL) (NON AZ PRODUCT)
     Route: 048
     Dates: start: 20130823
  71. METOPROLOL SUCCINATE. [Interacting]
     Active Substance: METOPROLOL SUCCINATE
     Indication: BLOOD PRESSURE SYSTOLIC ABNORMAL
     Dosage: 25 MG, DAILY (PAR PHARMACEUTICAL) (NON AZ PRODUCT)
     Route: 048
     Dates: start: 20130823
  72. METOPROLOL SUCCINATE. [Interacting]
     Active Substance: METOPROLOL SUCCINATE
     Indication: CARDIAC FAILURE
     Dosage: 25 MG, DAILY (PAR PHARMACEUTICAL) (NON AZ PRODUCT)
     Route: 048
     Dates: start: 20130823
  73. METOPROLOL SUCCINATE. [Interacting]
     Active Substance: METOPROLOL SUCCINATE
     Indication: BLOOD PRESSURE ABNORMAL
     Dosage: 25 MG, DAILY (PAR PHARMACEUTICAL) (NON AZ PRODUCT)
     Route: 048
  74. METOPROLOL SUCCINATE. [Interacting]
     Active Substance: METOPROLOL SUCCINATE
     Indication: HYPERTROPHIC CARDIOMYOPATHY
     Dosage: 25 MG, DAILY (PAR PHARMACEUTICAL) (NON AZ PRODUCT)
     Route: 048
  75. METOPROLOL SUCCINATE. [Interacting]
     Active Substance: METOPROLOL SUCCINATE
     Indication: BLOOD PRESSURE ABNORMAL
     Dosage: 25 MG, DAILY (PAR PHARMACEUTICAL) (NON AZ PRODUCT)
     Route: 048
  76. VERAPAMIL [Interacting]
     Active Substance: VERAPAMIL HYDROCHLORIDE
     Indication: HYPERTROPHIC CARDIOMYOPATHY
     Route: 048
     Dates: start: 2010
  77. VERAPAMIL [Interacting]
     Active Substance: VERAPAMIL HYDROCHLORIDE
     Indication: BLOOD PRESSURE ABNORMAL
     Route: 048
     Dates: start: 2010
  78. LASIX [Concomitant]
     Active Substance: FUROSEMIDE
     Indication: OEDEMA PERIPHERAL
     Route: 048
     Dates: start: 2010
  79. LASIX [Concomitant]
     Active Substance: FUROSEMIDE
     Indication: DIURETIC THERAPY
     Route: 048
     Dates: start: 2010
  80. LASIX [Concomitant]
     Active Substance: FUROSEMIDE
     Indication: OEDEMA PERIPHERAL
     Route: 048
  81. LASIX [Concomitant]
     Active Substance: FUROSEMIDE
     Indication: FLUID RETENTION
     Route: 048
  82. LASIX [Concomitant]
     Active Substance: FUROSEMIDE
     Indication: DIURETIC THERAPY
     Route: 048
  83. VITAMIN D [Concomitant]
     Active Substance: CHOLECALCIFEROL
     Indication: VITAMIN D DEFICIENCY
  84. CRESTOR [Suspect]
     Active Substance: ROSUVASTATIN CALCIUM
     Indication: LIPIDS ABNORMAL
     Route: 048
  85. CRESTOR [Suspect]
     Active Substance: ROSUVASTATIN CALCIUM
     Indication: LIPIDS ABNORMAL
     Dosage: 5 MG FOUR TIMES A WEEK
     Route: 048
     Dates: start: 201311
  86. CRESTOR [Suspect]
     Active Substance: ROSUVASTATIN CALCIUM
     Indication: HYPERLIPIDAEMIA
     Dosage: 5 MG FOUR TIMES A WEEK
     Route: 048
     Dates: start: 201410
  87. CRESTOR [Suspect]
     Active Substance: ROSUVASTATIN CALCIUM
     Indication: LIPIDS ABNORMAL
     Dosage: 5 MG FOUR TIMES A WEEK
     Route: 048
     Dates: start: 201410
  88. CRESTOR [Suspect]
     Active Substance: ROSUVASTATIN CALCIUM
     Indication: HYPERLIPIDAEMIA
     Dosage: FOUR TIMES PER WEEK
     Route: 048
  89. CRESTOR [Suspect]
     Active Substance: ROSUVASTATIN CALCIUM
     Indication: LOW DENSITY LIPOPROTEIN INCREASED
     Dosage: FOUR TIMES PER WEEK
     Route: 048
  90. METOPROLOL SUCCINATE. [Interacting]
     Active Substance: METOPROLOL SUCCINATE
     Indication: CARDIAC FAILURE
     Dosage: 25 MG, DAILY (PAR PHARMACEUTICAL) (NON AZ PRODUCT)
     Route: 048
     Dates: start: 2013
  91. METOPROLOL SUCCINATE. [Interacting]
     Active Substance: METOPROLOL SUCCINATE
     Indication: BLOOD PRESSURE ABNORMAL
     Dosage: 25 MG, DAILY (PAR PHARMACEUTICAL) (NON AZ PRODUCT)
     Route: 048
     Dates: start: 20130823
  92. METOPROLOL SUCCINATE. [Interacting]
     Active Substance: METOPROLOL SUCCINATE
     Indication: HEART RATE ABNORMAL
     Dosage: 25 MG, DAILY (PAR PHARMACEUTICAL) (NON AZ PRODUCT)
     Route: 048
  93. METOPROLOL SUCCINATE. [Interacting]
     Active Substance: METOPROLOL SUCCINATE
     Indication: AORTIC STENOSIS
     Dosage: 25 MG, DAILY (PAR PHARMACEUTICAL) (NON AZ PRODUCT)
     Route: 048
  94. METOPROLOL SUCCINATE. [Interacting]
     Active Substance: METOPROLOL SUCCINATE
     Indication: BLOOD PRESSURE SYSTOLIC ABNORMAL
     Dosage: 50 MG, DAILY (PAR PHARMACEUTICAL) (NON AZ PRODUCT)
     Route: 048
     Dates: start: 201501, end: 201506
  95. METOPROLOL SUCCINATE. [Interacting]
     Active Substance: METOPROLOL SUCCINATE
     Indication: BLOOD PRESSURE ABNORMAL
     Dosage: 50 MG, DAILY (PAR PHARMACEUTICAL) (NON AZ PRODUCT)
     Route: 048
     Dates: start: 201501, end: 201506
  96. METOPROLOL SUCCINATE. [Interacting]
     Active Substance: METOPROLOL SUCCINATE
     Indication: CARDIAC DISORDER
     Dosage: 25 MG, DAILY (PAR PHARMACEUTICAL) (NON AZ PRODUCT)
     Route: 048
     Dates: start: 201507
  97. METOPROLOL SUCCINATE. [Interacting]
     Active Substance: METOPROLOL SUCCINATE
     Indication: CARDIAC FAILURE
     Dosage: 25 MG, DAILY (PAR PHARMACEUTICAL) (NON AZ PRODUCT)
     Route: 048
     Dates: start: 201507
  98. METOPROLOL SUCCINATE. [Interacting]
     Active Substance: METOPROLOL SUCCINATE
     Indication: HEART RATE ABNORMAL
     Dosage: 25 MG, DAILY (PAR PHARMACEUTICAL) (NON AZ PRODUCT)
     Route: 048
  99. VERAPAMIL [Interacting]
     Active Substance: VERAPAMIL HYDROCHLORIDE
     Indication: HEART RATE ABNORMAL
     Route: 048
  100. VERAPAMIL [Interacting]
     Active Substance: VERAPAMIL HYDROCHLORIDE
     Indication: HEART RATE ABNORMAL
     Route: 048
     Dates: start: 2010
  101. LASIX [Concomitant]
     Active Substance: FUROSEMIDE
     Indication: OEDEMA PERIPHERAL
     Dosage: 20MG, 4 DAYS PER WEEK
     Route: 048
  102. LASIX [Concomitant]
     Active Substance: FUROSEMIDE
     Indication: FLUID RETENTION
     Route: 048
     Dates: start: 2010
  103. ASPIRIN. [Concomitant]
     Active Substance: ASPIRIN
     Indication: ANTICOAGULANT THERAPY
     Dosage: 160 MG, DAILY UNKNOWN
     Route: 048
     Dates: start: 2010
  104. VITAMIN D [Concomitant]
     Active Substance: CHOLECALCIFEROL
     Indication: BLOOD CALCIUM ABNORMAL
  105. VITAMIN D [Concomitant]
     Active Substance: CHOLECALCIFEROL
     Indication: BONE DISORDER
  106. METOPROLOL SUCCINATE. [Interacting]
     Active Substance: METOPROLOL SUCCINATE
     Indication: HYPERTROPHIC CARDIOMYOPATHY
     Dosage: 25 MG, DAILY (PAR PHARMACEUTICAL) (NON AZ PRODUCT)
     Route: 048
  107. METOPROLOL SUCCINATE. [Interacting]
     Active Substance: METOPROLOL SUCCINATE
     Indication: BLOOD PRESSURE ABNORMAL
     Dosage: 25 MG, DAILY (PAR PHARMACEUTICAL) (NON AZ PRODUCT)
     Route: 048
  108. METOPROLOL SUCCINATE. [Interacting]
     Active Substance: METOPROLOL SUCCINATE
     Indication: BLOOD PRESSURE ABNORMAL
     Dosage: 25 MG, DAILY (PAR PHARMACEUTICAL) (NON AZ PRODUCT)
     Route: 048
  109. METOPROLOL SUCCINATE. [Interacting]
     Active Substance: METOPROLOL SUCCINATE
     Indication: HEART RATE ABNORMAL
     Dosage: 25 MG, DAILY (PAR PHARMACEUTICAL) (NON AZ PRODUCT)
     Route: 048
  110. METOPROLOL SUCCINATE. [Interacting]
     Active Substance: METOPROLOL SUCCINATE
     Indication: BLOOD PRESSURE SYSTOLIC ABNORMAL
     Dosage: 25 MG, DAILY (PAR PHARMACEUTICAL) (NON AZ PRODUCT)
     Route: 048
  111. METOPROLOL SUCCINATE. [Interacting]
     Active Substance: METOPROLOL SUCCINATE
     Indication: AORTIC STENOSIS
     Dosage: 25 MG, DAILY (PAR PHARMACEUTICAL) (NON AZ PRODUCT)
     Route: 048
     Dates: start: 201507
  112. METOPROLOL. [Suspect]
     Active Substance: METOPROLOL
     Route: 065
  113. VERAPAMIL [Interacting]
     Active Substance: VERAPAMIL HYDROCHLORIDE
     Indication: AORTIC STENOSIS
     Route: 048
  114. LASIX [Concomitant]
     Active Substance: FUROSEMIDE
     Indication: DIURETIC THERAPY
     Route: 048
  115. ZANTAC [Concomitant]
     Active Substance: RANITIDINE HYDROCHLORIDE
     Indication: DYSPEPSIA
     Dosage: 75.0MG AS REQUIRED
     Route: 048
     Dates: start: 2006
  116. CRESTOR [Suspect]
     Active Substance: ROSUVASTATIN CALCIUM
     Indication: BLOOD CHOLESTEROL ABNORMAL
     Dosage: 5 MG FOUR TIMES A WEEK
     Route: 048
     Dates: start: 201311
  117. METOPROLOL SUCCINATE. [Interacting]
     Active Substance: METOPROLOL SUCCINATE
     Indication: BLOOD PRESSURE SYSTOLIC ABNORMAL
     Dosage: 25 MG, DAILY (PAR PHARMACEUTICAL) (NON AZ PRODUCT)
     Route: 048
     Dates: start: 2013
  118. METOPROLOL SUCCINATE. [Interacting]
     Active Substance: METOPROLOL SUCCINATE
     Indication: HEART RATE ABNORMAL
     Dosage: 25 MG, DAILY (PAR PHARMACEUTICAL) (NON AZ PRODUCT)
     Route: 048
  119. METOPROLOL SUCCINATE. [Interacting]
     Active Substance: METOPROLOL SUCCINATE
     Indication: AORTIC STENOSIS
     Dosage: 25 MG, DAILY (PAR PHARMACEUTICAL) (NON AZ PRODUCT)
     Route: 048
  120. METOPROLOL SUCCINATE. [Interacting]
     Active Substance: METOPROLOL SUCCINATE
     Indication: CARDIAC FAILURE
     Dosage: 25 MG, DAILY (PAR PHARMACEUTICAL) (NON AZ PRODUCT)
     Route: 048
  121. VERAPAMIL [Interacting]
     Active Substance: VERAPAMIL HYDROCHLORIDE
     Indication: BLOOD PRESSURE ABNORMAL
     Route: 048
  122. VERAPAMIL [Interacting]
     Active Substance: VERAPAMIL HYDROCHLORIDE
     Indication: AORTIC STENOSIS
     Route: 048
     Dates: start: 2010
  123. LASIX [Concomitant]
     Active Substance: FUROSEMIDE
     Indication: FLUID RETENTION
     Dosage: 20MG, 4 DAYS PER WEEK
     Route: 048
  124. LASIX [Concomitant]
     Active Substance: FUROSEMIDE
     Indication: FLUID RETENTION
     Dosage: DAILY AS NEEDED
     Route: 048
  125. LASIX [Concomitant]
     Active Substance: FUROSEMIDE
     Indication: OEDEMA PERIPHERAL
     Route: 048
  126. EVISTA [Concomitant]
     Active Substance: RALOXIFENE HYDROCHLORIDE
     Indication: OSTEOPOROSIS
     Route: 048
     Dates: start: 2006
  127. VITAMIN D [Concomitant]
     Active Substance: CHOLECALCIFEROL
     Indication: BLOOD CALCIUM ABNORMAL
     Route: 048
     Dates: start: 2014

REACTIONS (47)
  - Macular degeneration [Not Recovered/Not Resolved]
  - Arthritis [Not Recovered/Not Resolved]
  - Chest pain [Unknown]
  - Dry eye [Unknown]
  - Blood creatine phosphokinase increased [Unknown]
  - Blood glucose increased [Unknown]
  - Hypersensitivity [Unknown]
  - Intentional product misuse [Unknown]
  - Malaise [Not Recovered/Not Resolved]
  - Cardiac disorder [Unknown]
  - Stress [Not Recovered/Not Resolved]
  - Wheezing [Recovering/Resolving]
  - Pain [Unknown]
  - Muscle spasms [Not Recovered/Not Resolved]
  - Headache [Not Recovered/Not Resolved]
  - Bradycardia [Recovered/Resolved]
  - Toothache [Unknown]
  - Overweight [Unknown]
  - Back pain [Not Recovered/Not Resolved]
  - Tooth disorder [Not Recovered/Not Resolved]
  - Fatigue [Unknown]
  - Product use issue [Unknown]
  - Inappropriate schedule of drug administration [Not Recovered/Not Resolved]
  - Atrial flutter [Unknown]
  - Cardiac failure congestive [Not Recovered/Not Resolved]
  - Peripheral swelling [Not Recovered/Not Resolved]
  - Memory impairment [Not Recovered/Not Resolved]
  - Low density lipoprotein increased [Unknown]
  - Productive cough [Not Recovered/Not Resolved]
  - Dysphonia [Not Recovered/Not Resolved]
  - Asthma [Unknown]
  - Loss of personal independence in daily activities [Unknown]
  - Tracheobronchitis viral [Recovering/Resolving]
  - Blood pressure systolic increased [Unknown]
  - Dyspnoea [Not Recovered/Not Resolved]
  - Myocardial necrosis marker increased [Unknown]
  - Fall [Unknown]
  - Musculoskeletal disorder [Unknown]
  - Diarrhoea [Recovered/Resolved]
  - Aortic stenosis [Not Recovered/Not Resolved]
  - Neuropathy peripheral [Unknown]
  - Drug interaction [Unknown]
  - Oesophageal pain [Not Recovered/Not Resolved]
  - Confusional state [Unknown]
  - Throat irritation [Not Recovered/Not Resolved]
  - Nervousness [Not Recovered/Not Resolved]
  - Off label use [Unknown]

NARRATIVE: CASE EVENT DATE: 2013
